FAERS Safety Report 10027919 (Version 2)
Quarter: 2014Q1

REPORT INFORMATION
  Report Type: Spontaneous
  Country: FR (occurrence: FR)
  Receive Date: 20140321
  Receipt Date: 20140321
  Transmission Date: 20141002
  Serious: Yes (Other)
  Sender: FDA-Public Use
  Company Number: FR-SA-THYM-1002904

PATIENT
  Age: 30 Year
  Sex: Female
  Weight: 73 kg

DRUGS (18)
  1. THYMOGLOBULINE [Suspect]
     Indication: BONE MARROW CONDITIONING REGIMEN
     Dosage: 275 MG, QD
     Route: 065
     Dates: start: 20111022, end: 20111022
  2. ENDOXAN [Concomitant]
     Indication: BONE MARROW CONDITIONING REGIMEN
     Dosage: 547.2 MG, QD
     Route: 065
     Dates: start: 20111020, end: 20111023
  3. FLUDARA [Concomitant]
     Indication: BONE MARROW CONDITIONING REGIMEN
     Dosage: 55 MG, QD
     Route: 065
     Dates: start: 20111020, end: 20111023
  4. DEXCHLORPHENIRAMINE MALEATE [Concomitant]
     Indication: BONE MARROW CONDITIONING REGIMEN
     Dosage: 10 MG, UNK
     Route: 042
     Dates: start: 20111022, end: 20111023
  5. METHYLPREDNISOLONE SODIUM SUCCINATE [Concomitant]
     Indication: BONE MARROW CONDITIONING REGIMEN
     Dosage: 20 MG, BID
     Route: 065
     Dates: start: 20111022, end: 20111024
  6. VITAMINS NOS [Concomitant]
     Dosage: UNK
     Route: 065
     Dates: start: 20111018
  7. MINERALS NOS/SODIUM MOLYBDATE/VITAMINS NOS [Concomitant]
     Dosage: UNK
     Route: 065
     Dates: start: 20111018
  8. MAGNESIUM OXIDE [Concomitant]
     Dosage: UNK
     Route: 065
     Dates: start: 20111018
  9. PANTOPRAZOLE [Concomitant]
     Dosage: 20 MG, QD
     Route: 065
     Dates: start: 20111018
  10. GABAPENTIN [Concomitant]
     Dosage: 300 MG, TID
     Route: 065
     Dates: start: 20111018
  11. OXYCODONE HYDROCHLORIDE [Concomitant]
     Dosage: 5 MG, Q4HR
     Route: 065
     Dates: start: 20111018
  12. AMITRIPTYLINE HYDROCHLORIDE [Concomitant]
     Dosage: 25 MG, QD
     Route: 065
     Dates: start: 20111018
  13. ONDANSETRON HYDROCHLORIDE [Concomitant]
     Dosage: UNK
     Route: 065
     Dates: start: 20111020, end: 20111026
  14. ONDANSETRON HYDROCHLORIDE [Concomitant]
     Dosage: UNK
     Route: 065
     Dates: start: 20111220
  15. URSODEOXYCHOLIC ACID [Concomitant]
     Dosage: 500 MG, QD
     Route: 065
     Dates: start: 20111020
  16. MESNA [Concomitant]
     Dosage: 182.4 MG, QID
     Route: 065
     Dates: start: 20111020, end: 20111025
  17. ALIZAPRIDE HYDROCHLORIDE [Concomitant]
     Dosage: 50 MG, Q4HR
     Route: 065
     Dates: start: 20111022
  18. VALACICLOVIR HYDROCHLORIDE [Concomitant]
     Dosage: 500 MG, Q4HR
     Route: 065
     Dates: start: 20111018, end: 20111025

REACTIONS (6)
  - Hepatocellular injury [Recovered/Resolved]
  - Alanine aminotransferase increased [Recovered/Resolved]
  - Aspartate aminotransferase increased [Recovered/Resolved]
  - Blood bilirubin increased [Recovered/Resolved]
  - Coagulopathy [Recovered/Resolved]
  - Hypotension [Unknown]
